FAERS Safety Report 8694569 (Version 2)
Quarter: 2013Q4

REPORT INFORMATION
  Report Type: Spontaneous
  Country: US (occurrence: US)
  Receive Date: 20120731
  Receipt Date: 20131108
  Transmission Date: 20140711
  Serious: Yes (Hospitalization)
  Sender: FDA-Public Use
  Company Number: US-009507513-1207USA009752

PATIENT
  Age: 62 Year
  Sex: Female

DRUGS (33)
  1. ZOCOR [Suspect]
     Route: 048
  2. CRESTOR [Suspect]
     Dosage: UNK
     Route: 048
  3. CELECOXIB [Suspect]
  4. NAPROXEN [Suspect]
  5. IBUPROFEN [Suspect]
  6. PLACEBO (UNSPECIFIED) [Suspect]
  7. ALLEGRA [Concomitant]
     Route: 048
  8. LOTENSIN HCT [Concomitant]
     Route: 048
  9. DILANTIN [Concomitant]
     Route: 048
  10. CYMBALTA [Concomitant]
     Route: 048
  11. PHOSLO [Concomitant]
  12. THERAGRAN TABLETS ADVANCED FORMULA [Concomitant]
  13. PRILOSEC [Concomitant]
     Route: 048
  14. MIRALAX [Concomitant]
     Dosage: 1 PACK, QD
     Route: 048
  15. PSYLLIUM HUSK [Concomitant]
  16. ZOCOR [Concomitant]
     Route: 048
  17. LOTENSIN (CAPTOPRIL) [Concomitant]
  18. BUSPAR [Concomitant]
     Route: 048
  19. CATAPRES [Concomitant]
     Route: 048
  20. FLEXERIL [Concomitant]
     Route: 048
  21. COLACE [Concomitant]
     Route: 048
  22. FERROUS SULFATE [Concomitant]
     Route: 048
  23. CLONIDINE [Concomitant]
  24. METAMUCIL [Concomitant]
     Route: 048
  25. PROTONIX [Concomitant]
  26. VITAMINS (UNSPECIFIED) [Concomitant]
  27. LISINOPRIL [Concomitant]
     Route: 048
  28. HYDROCHLOROTHIAZIDE [Concomitant]
     Route: 048
  29. IRON (UNSPECIFIED) [Concomitant]
  30. PREMARIN [Concomitant]
     Route: 048
  31. NEXIUM [Concomitant]
  32. DOCUSATE SODIUM [Concomitant]
  33. AMBIEN [Concomitant]
     Route: 048

REACTIONS (3)
  - Renal failure [Unknown]
  - Hepatic failure [Unknown]
  - Toxic encephalopathy [Unknown]
